FAERS Safety Report 22257550 (Version 2)
Quarter: 2023Q2

REPORT INFORMATION
  Report Type: Spontaneous
  Country: US (occurrence: US)
  Receive Date: 20230427
  Receipt Date: 20230602
  Transmission Date: 20230721
  Serious: No
  Sender: FDA-Public Use
  Company Number: US-JNJFOC-20230437365

PATIENT
  Age: 90 Year
  Sex: Female

DRUGS (1)
  1. WOMENS ROGAINE UNSCENTED [Suspect]
     Active Substance: MINOXIDIL
     Indication: Alopecia
     Dosage: DOSE: HALF A CAPFUL?FREQUENCY: ONCE IN THE MORNING EVERYDAY. I FORGET TO USE IT YESTERDAY.
     Route: 061
     Dates: start: 202302

REACTIONS (2)
  - Poor quality product administered [Unknown]
  - Product physical consistency issue [Unknown]

NARRATIVE: CASE EVENT DATE: 20230201
